FAERS Safety Report 19486062 (Version 1)
Quarter: 2021Q3

REPORT INFORMATION
  Report Type: Spontaneous
  Country: US (occurrence: US)
  Receive Date: 20210702
  Receipt Date: 20210702
  Transmission Date: 20211014
  Serious: Yes (Other)
  Sender: FDA-Public Use
  Company Number: US-ALKEM LABORATORIES LIMITED-US-ALKEM-2021-01917

PATIENT
  Age: 1 Day
  Sex: Female

DRUGS (8)
  1. CLOBAZAM. [Suspect]
     Active Substance: CLOBAZAM
     Indication: SEIZURE
     Dosage: UNK
     Route: 065
  2. PHENOBARBITAL. [Suspect]
     Active Substance: PHENOBARBITAL
     Indication: SEIZURE
     Dosage: UNK
     Route: 065
  3. SIROLIMUS. [Suspect]
     Active Substance: SIROLIMUS
     Indication: SEIZURE
     Dosage: 1 MILLIGRAM/SQ. METER, QD
     Route: 048
  4. LEVETIRACETAM. [Suspect]
     Active Substance: LEVETIRACETAM
     Indication: SEIZURE
     Dosage: UNK
     Route: 065
  5. TOPIRAMATE. [Suspect]
     Active Substance: TOPIRAMATE
     Indication: SEIZURE
     Dosage: UNK
     Route: 065
  6. MIDAZOLAM. [Suspect]
     Active Substance: MIDAZOLAM
     Indication: SEIZURE
     Dosage: UNK
     Route: 065
  7. PHENYTOIN. [Suspect]
     Active Substance: PHENYTOIN
     Indication: SEIZURE
     Dosage: UNK
     Route: 065
  8. PYRIDOXINE [Suspect]
     Active Substance: PYRIDOXINE
     Indication: SEIZURE
     Dosage: UNK
     Route: 065

REACTIONS (1)
  - Drug ineffective [Unknown]
